FAERS Safety Report 7487639-4 (Version None)
Quarter: 2011Q2

REPORT INFORMATION
  Report Type: 
  Country: None (occurrence: None)
  Receive Date: 20110518
  Receipt Date: 20090912
  Transmission Date: 20111010
  Serious: Yes (Hospitalization, Other)
  Sender: FDA-Public Use
  Company Number: US-BAYER-200933156NA

PATIENT
  Age: 68 Year
  Sex: Male
  Weight: 72 kg

DRUGS (19)
  1. LOVENOX [Concomitant]
     Route: 048
  2. ACETYLSALICYLIC ACID SRT [Concomitant]
  3. RED BLOOD CELLS [Concomitant]
     Dosage: 500 CC.
     Route: 042
     Dates: start: 20010126
  4. LISINOPRIL [Concomitant]
     Indication: HYPERTENSION
     Dosage: UNK
     Route: 048
     Dates: start: 19900101
  5. ZESTRIL [Concomitant]
     Indication: HYPERTENSION
     Dosage: UNK
     Route: 048
     Dates: start: 19900101
  6. NOVOLIN [INSULIN] [Concomitant]
     Indication: TYPE 1 DIABETES MELLITUS
     Dosage: UNK
     Route: 058
     Dates: start: 19480101
  7. TRASYLOL [Suspect]
     Indication: CORONARY ARTERY BYPASS
     Dosage: 100 CC THEN 25CC/HOUR INFUSION
     Route: 042
     Dates: start: 20010126, end: 20010126
  8. LIPITOR [Concomitant]
     Dosage: 20 MG/DAILY
     Route: 048
  9. NOVOLIN [INSULIN] [Concomitant]
     Dosage: 30UNIT OF REGULAR INSULIN
     Route: 042
     Dates: start: 20010126
  10. ATROPINE [Concomitant]
     Route: 048
  11. HEPARIN [Concomitant]
     Dosage: 35,000 U
     Route: 042
     Dates: start: 20010126
  12. PLASMALYTE [GLUCOSE,POTASSIUM CHLORIDE] [Concomitant]
     Dosage: 2500 CC
     Route: 042
     Dates: start: 20010126
  13. CARDIZEM [Concomitant]
     Dosage: 360 MG/DAILY
     Route: 048
  14. TRANSDERM-NITRO [Concomitant]
     Dosage: 0.4 MG PER HOUR
     Route: 061
  15. ANCEF [Concomitant]
     Dosage: 2GMS
     Route: 042
     Dates: start: 20010126
  16. HEPARIN [Concomitant]
     Route: 048
  17. PLAVIX [Concomitant]
     Dosage: 75 MG/DAILY
     Route: 048
  18. FRESH FROZEN PLASMA [Concomitant]
     Dosage: 2 UNITS
     Route: 042
     Dates: start: 20010127
  19. VERPAMIL HCL [Concomitant]
     Dosage: 15
     Route: 042
     Dates: start: 20010126

REACTIONS (19)
  - ANXIETY [None]
  - PERICARDIAL HAEMORRHAGE [None]
  - CARDIAC TAMPONADE [None]
  - ISCHAEMIC HEPATITIS [None]
  - ANAEMIA [None]
  - EMOTIONAL DISTRESS [None]
  - INJURY [None]
  - RENAL IMPAIRMENT [None]
  - PAIN [None]
  - RENAL INJURY [None]
  - STRESS [None]
  - UNEVALUABLE EVENT [None]
  - FEAR [None]
  - THROMBOCYTOPENIA [None]
  - PERIPHERAL ISCHAEMIA [None]
  - RESPIRATORY FAILURE [None]
  - RESPIRATORY ARREST [None]
  - URINARY TRACT INFECTION PSEUDOMONAL [None]
  - RENAL FAILURE [None]
